FAERS Safety Report 19002401 (Version 1)
Quarter: 2021Q1

REPORT INFORMATION
  Report Type: Spontaneous
  Country: SI (occurrence: SI)
  Receive Date: 20210312
  Receipt Date: 20210312
  Transmission Date: 20210420
  Serious: Yes (Hospitalization)
  Sender: FDA-Public Use
  Company Number: SI-ABBVIE-21K-261-3813532-00

PATIENT
  Age: 77 Year
  Sex: Male
  Weight: 75 kg

DRUGS (3)
  1. IMBRUVICA [Suspect]
     Active Substance: IBRUTINIB
     Indication: WALDENSTROM^S MACROGLOBULINAEMIA
     Route: 048
  2. IMBRUVICA [Suspect]
     Active Substance: IBRUTINIB
     Route: 048
  3. IMBRUVICA [Suspect]
     Active Substance: IBRUTINIB
     Dosage: 140 MG; UNTILL AF DEVELOPED 3 TBL. DAILY, THEN 2 TBL. DAILY UNTILL DILATED CARDIOMYOPATHY.
     Route: 048

REACTIONS (3)
  - Atrial fibrillation [Not Recovered/Not Resolved]
  - Cardiac failure [Recovering/Resolving]
  - Congestive cardiomyopathy [Recovering/Resolving]

NARRATIVE: CASE EVENT DATE: 20200319
